FAERS Safety Report 6829440-8 (Version None)
Quarter: 2010Q3

REPORT INFORMATION
  Report Type: 
  Country: None (occurrence: None)
  Receive Date: 20100709
  Receipt Date: 20070307
  Transmission Date: 20110219
  Serious: No
  Sender: FDA-Public Use
  Company Number: US-PFIZER INC-2007005776

PATIENT
  Sex: Female
  Weight: 97.1 kg

DRUGS (11)
  1. CHANTIX [Suspect]
     Indication: SMOKING CESSATION THERAPY
     Dates: start: 20070103, end: 20070116
  2. FLEXERIL [Concomitant]
  3. ISOSORBIDE [Concomitant]
  4. LOVASTATIN [Concomitant]
  5. ACETYLSALICYLIC ACID [Concomitant]
  6. DILTIAZEM [Concomitant]
  7. PROZAC [Concomitant]
  8. SYNTHROID [Concomitant]
  9. VICODIN [Concomitant]
  10. MULTIVITAMINS, COMBINATIONS [Concomitant]
  11. OTHER RESPIRATORY SYSTEM PRODUCTS [Concomitant]
     Route: 055

REACTIONS (1)
  - DRUG INEFFECTIVE [None]
